FAERS Safety Report 18527214 (Version 1)
Quarter: 2020Q4

REPORT INFORMATION
  Report Type: Spontaneous
  Country: AR (occurrence: AR)
  Receive Date: 20201120
  Receipt Date: 20201120
  Transmission Date: 20210114
  Serious: Yes (Hospitalization, Other)
  Sender: FDA-Public Use
  Company Number: AR-PFIZER INC-2020458879

PATIENT
  Age: 69 Year
  Sex: Male

DRUGS (2)
  1. SUTENT [Suspect]
     Active Substance: SUNITINIB MALATE
     Dosage: 50 MG, CYCLIC (DAILY SCHEME 2X1)
  2. SUTENT [Suspect]
     Active Substance: SUNITINIB MALATE
     Indication: METASTATIC RENAL CELL CARCINOMA
     Dosage: 50 MG, CYCLIC ( DAILY SCHEME 4X2)
     Dates: start: 20190427

REACTIONS (8)
  - Anaemia [Unknown]
  - Haematuria [Unknown]
  - Malaise [Recovering/Resolving]
  - COVID-19 [Unknown]
  - Asthenia [Recovering/Resolving]
  - Tumour rupture [Unknown]
  - Pulmonary thrombosis [Unknown]
  - Abdominal discomfort [Unknown]

NARRATIVE: CASE EVENT DATE: 202008
